FAERS Safety Report 6379118-2 (Version None)
Quarter: 2009Q3

REPORT INFORMATION
  Report Type: 
  Country: None (occurrence: None)
  Receive Date: 20090923
  Receipt Date: 20090923
  Transmission Date: 20100115
  Serious: Yes (Life-Threatening)
  Sender: FDA-Public Use
  Company Number: None

PATIENT
  Age: 23 Year
  Sex: Female
  Weight: 104.4 kg

DRUGS (12)
  1. VANCOMYCIN [Suspect]
     Indication: EAR INFECTION BACTERIAL
     Dosage: 1.5G IV Q12 HOURS
     Route: 042
     Dates: start: 20090603, end: 20090604
  2. VANCOMYCIN [Suspect]
     Indication: STAPHYLOCOCCAL INFECTION
     Dosage: 1.5G IV Q12 HOURS
     Route: 042
     Dates: start: 20090603, end: 20090604
  3. CA103 W VIT D [Concomitant]
  4. CEFEPIME [Concomitant]
  5. FERROUS SULFATE TAB [Concomitant]
  6. FUROSEMIDE [Concomitant]
  7. LANSOPRAZOLE [Concomitant]
  8. LEVOFLOXACIN [Concomitant]
  9. ALBUTEROL [Concomitant]
  10. NEBSOINE [Concomitant]
  11. IPRATROPIUM [Concomitant]
  12. HEPARIN [Concomitant]

REACTIONS (3)
  - ERYTHEMA [None]
  - LIP SWELLING [None]
  - PALMAR ERYTHEMA [None]
